FAERS Safety Report 26138255 (Version 2)
Quarter: 2025Q4

REPORT INFORMATION
  Report Type: Spontaneous
  Country: CN (occurrence: CN)
  Receive Date: 20251210
  Receipt Date: 20251215
  Transmission Date: 20260117
  Serious: Yes (Hospitalization, Other)
  Sender: MERCK SHARP & DOHME LLC
  Company Number: CN-009507513-2357217

PATIENT
  Age: 62 Year
  Sex: Male
  Weight: 80 kg

DRUGS (1)
  1. ERTUGLIFLOZIN [Suspect]
     Active Substance: ERTUGLIFLOZIN
     Indication: Diabetic complication
     Dosage: 5 MG, QD
     Route: 048
     Dates: start: 20251111, end: 20251117

REACTIONS (5)
  - Hyperkalaemia [Recovering/Resolving]
  - Haematuria [Recovering/Resolving]
  - Glucose urine present [Unknown]
  - Crystal urine present [Unknown]
  - Hospitalisation [Unknown]

NARRATIVE: CASE EVENT DATE: 20250101
